FAERS Safety Report 14259687 (Version 2)
Quarter: 2017Q4

REPORT INFORMATION
  Report Type: Spontaneous
  Country: US (occurrence: US)
  Receive Date: 20171207
  Receipt Date: 20171218
  Transmission Date: 20180321
  Serious: Yes (Hospitalization)
  Sender: FDA-Public Use
  Company Number: US-IPSEN BIOPHARMACEUTICALS, INC.-2017-10585

PATIENT
  Age: 67 Year
  Sex: Female

DRUGS (10)
  1. XERMELO [Suspect]
     Active Substance: TELOTRISTAT ETHYL
     Indication: CARCINOID TUMOUR
     Route: 048
     Dates: start: 20170617, end: 2017
  2. XERMELO [Suspect]
     Active Substance: TELOTRISTAT ETHYL
     Indication: CARCINOID SYNDROME
     Route: 048
     Dates: start: 2017, end: 2017
  3. LOVASTATIN. [Concomitant]
     Active Substance: LOVASTATIN
     Dates: end: 2017
  4. LISINOPRIL. [Concomitant]
     Active Substance: LISINOPRIL
  5. HYDRALAZINE [Concomitant]
     Active Substance: HYDRALAZINE HYDROCHLORIDE
  6. XERMELO [Suspect]
     Active Substance: TELOTRISTAT ETHYL
     Route: 048
     Dates: start: 2017
  7. LANREOTIDE AUTOGEL [Suspect]
     Active Substance: LANREOTIDE
     Indication: CARCINOID SYNDROME
     Dosage: 120 MG
     Route: 065
  8. TORSEMIDE. [Concomitant]
     Active Substance: TORSEMIDE
     Dates: end: 2017
  9. PROCARDIA [Concomitant]
     Active Substance: NIFEDIPINE
  10. METAMUCIL [Concomitant]
     Active Substance: PLANTAGO SEED

REACTIONS (6)
  - Blood pressure increased [Not Recovered/Not Resolved]
  - Oedema peripheral [Not Recovered/Not Resolved]
  - Off label use [Unknown]
  - Constipation [Not Recovered/Not Resolved]
  - Muscle spasms [Not Recovered/Not Resolved]
  - Alopecia [Not Recovered/Not Resolved]

NARRATIVE: CASE EVENT DATE: 2017
